FAERS Safety Report 21616423 (Version 2)
Quarter: 2022Q4

REPORT INFORMATION
  Report Type: Spontaneous
  Country: US (occurrence: US)
  Receive Date: 20221118
  Receipt Date: 20221121
  Transmission Date: 20230113
  Serious: No
  Sender: FDA-Public Use
  Company Number: US-PFIZER INC-202201309573

PATIENT
  Sex: Male

DRUGS (1)
  1. CAVERJECT [Suspect]
     Active Substance: ALPROSTADIL
     Dosage: 40 UG

REACTIONS (1)
  - Drug ineffective [Unknown]
